FAERS Safety Report 12448648 (Version 1)
Quarter: 2016Q2

REPORT INFORMATION
  Report Type: Spontaneous
  Country: TR (occurrence: TR)
  Receive Date: 20160608
  Receipt Date: 20160608
  Transmission Date: 20160815
  Serious: Yes (Death, Other)
  Sender: FDA-Public Use
  Company Number: TR-OTSUKA-2016_012577

PATIENT
  Age: 62 Year
  Sex: Male

DRUGS (1)
  1. DACOGEN [Suspect]
     Active Substance: DECITABINE
     Indication: ACUTE MYELOID LEUKAEMIA
     Dosage: 20 MG/M2, UNK
     Route: 065
     Dates: start: 201402

REACTIONS (3)
  - Gastroenteritis [Unknown]
  - Febrile neutropenia [Unknown]
  - Death [Fatal]
